FAERS Safety Report 17158041 (Version 1)
Quarter: 2019Q4

REPORT INFORMATION
  Report Type: Spontaneous
  Country: FR (occurrence: FR)
  Receive Date: 20191216
  Receipt Date: 20191216
  Transmission Date: 20200122
  Serious: Yes (Hospitalization)
  Sender: FDA-Public Use
  Company Number: FR-009507513-1912FRA004954

PATIENT
  Age: 75 Year
  Sex: Male
  Weight: 62 kg

DRUGS (7)
  1. UROREC [Concomitant]
     Active Substance: SILODOSIN
     Dosage: UNK
  2. OXYCONTIN [Concomitant]
     Active Substance: OXYCODONE HYDROCHLORIDE
     Dosage: UNK
  3. ZOPICLONE [Concomitant]
     Active Substance: ZOPICLONE
     Dosage: UNK
  4. IRBESARTAN. [Concomitant]
     Active Substance: IRBESARTAN
     Dosage: UNK
  5. DUOPLAVIN [Concomitant]
     Active Substance: ASPIRIN\CLOPIDOGREL
     Dosage: UNK
  6. KEYTRUDA [Suspect]
     Active Substance: PEMBROLIZUMAB
     Indication: BRONCHIAL CARCINOMA
     Dosage: UNK
     Route: 041
     Dates: start: 201711, end: 201908
  7. ACETAMINOPHEN. [Concomitant]
     Active Substance: ACETAMINOPHEN
     Dosage: UNK

REACTIONS (1)
  - Fasciitis [Recovering/Resolving]

NARRATIVE: CASE EVENT DATE: 201907
